FAERS Safety Report 24018958 (Version 1)
Quarter: 2024Q2

REPORT INFORMATION
  Report Type: Spontaneous
  Country: FR (occurrence: FR)
  Receive Date: 20240627
  Receipt Date: 20240627
  Transmission Date: 20240716
  Serious: Yes (Death, Other)
  Sender: FDA-Public Use
  Company Number: FR-CLINIGEN-FR-CLI-2024-010351

PATIENT
  Age: 59 Year
  Sex: Female

DRUGS (4)
  1. FOSCARNET SODIUM [Suspect]
     Active Substance: FOSCARNET SODIUM
     Indication: Cytomegalovirus infection
     Dosage: DAY 18
     Route: 042
  2. FOSCARNET SODIUM [Suspect]
     Active Substance: FOSCARNET SODIUM
     Indication: Encephalitis
     Dosage: 45 MILLIGRAM/KILOGRAM
     Route: 042
  3. MARIBAVIR [Suspect]
     Active Substance: MARIBAVIR
     Indication: Cytomegalovirus infection
     Dosage: 400 MILLIGRAM, BID
  4. MARIBAVIR [Suspect]
     Active Substance: MARIBAVIR
     Indication: Encephalitis

REACTIONS (4)
  - Acute motor-sensory axonal neuropathy [Fatal]
  - Guillain-Barre syndrome [Fatal]
  - Neuropathy peripheral [Fatal]
  - Off label use [Unknown]
